FAERS Safety Report 5536284-6 (Version None)
Quarter: 2007Q4

REPORT INFORMATION
  Report Type: 
  Country: None (occurrence: None)
  Receive Date: 20071206
  Receipt Date: 20071130
  Transmission Date: 20080405
  Serious: Yes (Death, Other)
  Sender: FDA-Public Use
  Company Number: TH-BOEHRINGER INGELHEIM PHARMACEUTICALS, INC.-2007-DE-07061GD

PATIENT

DRUGS (4)
  1. NEVIRAPINE [Suspect]
     Indication: HIV INFECTION
     Route: 048
  2. NEVIRAPINE [Suspect]
     Route: 048
  3. ANTIRETROVIRAL THERAPY [Concomitant]
     Indication: HIV INFECTION
  4. COTRIM [Concomitant]

REACTIONS (2)
  - DEATH [None]
  - RASH [None]
